FAERS Safety Report 24697709 (Version 1)
Quarter: 2024Q4

REPORT INFORMATION
  Report Type: Other
  Country: JP (occurrence: JP)
  Receive Date: 20241204
  Receipt Date: 20241204
  Transmission Date: 20250114
  Serious: Yes (Hospitalization)
  Sender: B BRAUN
  Company Number: JP-B.Braun Medical Inc.-2166498

PATIENT
  Age: 74 Year
  Sex: Female

DRUGS (2)
  1. HEPARIN SODIUM IN DEXTROSE [Suspect]
     Active Substance: HEPARIN SODIUM
     Indication: Ischaemic stroke
  2. Steroid and antibiotic ointment [Concomitant]

REACTIONS (1)
  - Drug ineffective [Unknown]
